FAERS Safety Report 6729881-3 (Version None)
Quarter: 2010Q2

REPORT INFORMATION
  Report Type: 
  Country: None (occurrence: None)
  Receive Date: 20100518
  Receipt Date: 20100416
  Transmission Date: 20101027
  Serious: No
  Sender: FDA-Public Use
  Company Number: US-BAYER-201014417BCC

PATIENT
  Age: 65 Year
  Sex: Female
  Weight: 71 kg

DRUGS (4)
  1. ALEVE (CAPLET) [Suspect]
     Indication: ARTHRALGIA
     Dosage: TOTAL DAILY DOSE: 220 MG  UNIT DOSE: 220 MG
     Route: 048
     Dates: start: 20100411, end: 20100415
  2. ADVOPO [Concomitant]
  3. ALDACTONE [Concomitant]
  4. SYNTHROID [Concomitant]

REACTIONS (1)
  - FLUID RETENTION [None]
